FAERS Safety Report 15490183 (Version 1)
Quarter: 2018Q4

REPORT INFORMATION
  Report Type: Other
  Country: CA (occurrence: CA)
  Receive Date: 20181011
  Receipt Date: 20181011
  Transmission Date: 20190205
  Serious: Yes (Life-Threatening)
  Sender: FDA-Public Use
  Company Number: CA-MAYNE PHARMA-2018MYN001450

PATIENT

DRUGS (2)
  1. ERYTHROMYCIN. [Suspect]
     Active Substance: ERYTHROMYCIN
     Indication: PRODUCT USED FOR UNKNOWN INDICATION
     Dosage: UNK
  2. TUSSIONEX                          /00004701/ [Suspect]
     Active Substance: BROMHEXINE
     Indication: PRODUCT USED FOR UNKNOWN INDICATION
     Dosage: 5 ML, UNK

REACTIONS (4)
  - Respiratory depression [Unknown]
  - Overdose [Unknown]
  - Respiratory rate decreased [Unknown]
  - Depressed level of consciousness [Unknown]
